FAERS Safety Report 4766175-X (Version None)
Quarter: 2005Q3

REPORT INFORMATION
  Report Type: 
  Country: None (occurrence: None)
  Receive Date: 20050909
  Receipt Date: 20050824
  Transmission Date: 20060218
  Serious: Yes (Hospitalization)
  Sender: FDA-Public Use
  Company Number: DSA_26909_2005

PATIENT
  Age: 73 Year
  Sex: Male

DRUGS (3)
  1. RENIVACE [Suspect]
     Dosage: DF  PO
     Route: 048
  2. AMLODIPINE BESYLATE [Suspect]
     Dosage: DF PO
     Route: 048
  3. LEVOFLOXACIN [Suspect]
     Dosage: DF

REACTIONS (2)
  - ANAEMIA [None]
  - TOXIC EPIDERMAL NECROLYSIS [None]
